FAERS Safety Report 4356258-0 (Version None)
Quarter: 2004Q2

REPORT INFORMATION
  Report Type: 
  Country: None (occurrence: None)
  Receive Date: 20040511
  Receipt Date: 20040427
  Transmission Date: 20050107
  Serious: Yes (Death, Hospitalization)
  Sender: FDA-Public Use
  Company Number: 2004-04-1663

PATIENT
  Age: 40 Year
  Sex: Male

DRUGS (5)
  1. REBETOL [Suspect]
     Indication: HEPATITIS C
     Dosage: 800 MG QD ORAL
     Route: 048
     Dates: start: 20020417, end: 20020915
  2. ROFERON-A [Suspect]
     Indication: HEPATITIS C
     Dosage: 3 MU TIW SUBCUTANEOUS
     Route: 058
     Dates: start: 20020417, end: 20020915
  3. DDI (DIDEOXYINOSINE) ORALS [Suspect]
     Indication: HIV INFECTION
     Dosage: 400 MG/DAY ORAL
     Route: 048
     Dates: start: 20020501, end: 20020915
  4. TENOFOVIR (PMPA) ORALS [Suspect]
     Indication: HIV INFECTION
     Dosage: 300 MG QD ORAL
     Route: 048
     Dates: start: 20020501, end: 20020915
  5. LAMIVUDINE (3TC) ORALS [Suspect]
     Indication: HIV INFECTION
     Dosage: 300 MG QD ORAL
     Route: 048
     Dates: start: 20020501, end: 20020915

REACTIONS (5)
  - ABDOMINAL PAIN [None]
  - ASTHENIA [None]
  - LACTIC ACIDOSIS [None]
  - PANCREATITIS [None]
  - RENAL FAILURE [None]
